FAERS Safety Report 10291809 (Version 2)
Quarter: 2014Q3

REPORT INFORMATION
  Report Type: Spontaneous
  Country: US (occurrence: US)
  Receive Date: 20140710
  Receipt Date: 20140710
  Transmission Date: 20150326
  Serious: Yes (Other)
  Sender: FDA-Public Use
  Company Number: US-NAPPMUNDI-USA-2013-0106269

PATIENT
  Age: 50 Year
  Sex: Male
  Weight: 83.9 kg

DRUGS (1)
  1. BUTRANS [Suspect]
     Active Substance: BUPRENORPHINE
     Indication: PERONEAL NERVE INJURY
     Dosage: 5 MCG/HR, WEEKLY
     Route: 062
     Dates: start: 20130904, end: 20130904

REACTIONS (4)
  - Chest pain [Recovered/Resolved]
  - Sneezing [Recovered/Resolved]
  - Dyspnoea [Recovered/Resolved]
  - Respiratory depression [Unknown]

NARRATIVE: CASE EVENT DATE: 20130904
